FAERS Safety Report 21363471 (Version 10)
Quarter: 2023Q4

REPORT INFORMATION
  Report Type: Report from Study
  Country: JP (occurrence: JP)
  Receive Date: 20220922
  Receipt Date: 20231220
  Transmission Date: 20240109
  Serious: Yes (Hospitalization, Other)
  Sender: FDA-Public Use
  Company Number: JP-ASTELLAS-2022JP014096

PATIENT
  Age: 57 Year
  Sex: Male

DRUGS (14)
  1. ENFORTUMAB VEDOTIN [Suspect]
     Active Substance: ENFORTUMAB VEDOTIN
     Indication: Transitional cell carcinoma
     Route: 041
     Dates: start: 20220316, end: 20220720
  2. ENFORTUMAB VEDOTIN [Suspect]
     Active Substance: ENFORTUMAB VEDOTIN
     Indication: Bladder cancer
     Route: 041
     Dates: start: 20220829, end: 20221107
  3. APIDRA [Concomitant]
     Active Substance: INSULIN GLULISINE
     Indication: Diabetes mellitus
     Dosage: 6 IN THE MORNING, 19 IN THE AFTERNOON, 6 IN THE EVENING, THRICE DAILY
     Route: 065
     Dates: start: 20190926
  4. APIDRA [Concomitant]
     Active Substance: INSULIN GLULISINE
     Indication: Diabetes mellitus
     Dosage: 19 TO 22 UNITS, THRICE DAILY
     Route: 065
     Dates: start: 20220531
  5. APIDRA [Concomitant]
     Active Substance: INSULIN GLULISINE
     Dosage: UNK UNK, UNKNOWN FREQ.
     Route: 065
  6. INSULIN GLARGINE [Concomitant]
     Active Substance: INSULIN GLARGINE
     Indication: Diabetes mellitus
     Dosage: 26 UNITS IN THE MORNING, ONCE DAILY
     Route: 065
     Dates: start: 20190926
  7. INSULIN GLARGINE [Concomitant]
     Active Substance: INSULIN GLARGINE
     Indication: Diabetes mellitus
     Dosage: 25 TO 27 UNITS, ONCE DAILY
     Route: 065
     Dates: start: 20220531
  8. DIFLUPREDNATE [Concomitant]
     Active Substance: DIFLUPREDNATE
     Indication: Rash
     Dosage: 0.05 % (10 G), TWICE DAILY
     Route: 061
     Dates: start: 20220325
  9. DIFLUPREDNATE [Concomitant]
     Active Substance: DIFLUPREDNATE
     Indication: Pruritus
  10. HEPARINOID [Concomitant]
     Indication: Rash
     Dosage: 0.3 % (25 G), TWICE DAILY
     Route: 061
     Dates: start: 20220325
  11. HEPARINOID [Concomitant]
     Indication: Pruritus
  12. DESLORATADINE [Concomitant]
     Active Substance: DESLORATADINE
     Indication: Rash
     Route: 048
     Dates: start: 20220329
  13. DESLORATADINE [Concomitant]
     Active Substance: DESLORATADINE
     Indication: Pruritus
  14. AVELUMAB [Concomitant]
     Active Substance: AVELUMAB
     Indication: Transitional cell carcinoma
     Dosage: UNK UNK, UNKNOWN FREQ.
     Route: 065
     Dates: start: 20211206, end: 202203

REACTIONS (8)
  - Diabetes mellitus [Recovering/Resolving]
  - Neuropathy peripheral [Not Recovered/Not Resolved]
  - COVID-19 [Recovered/Resolved]
  - Rash [Recovering/Resolving]
  - Pruritus [Recovering/Resolving]
  - Alopecia [Not Recovered/Not Resolved]
  - Pyrexia [Recovered/Resolved]
  - Blood pressure decreased [Recovered/Resolved]

NARRATIVE: CASE EVENT DATE: 20220322
